FAERS Safety Report 23686591 (Version 1)
Quarter: 2024Q1

REPORT INFORMATION
  Report Type: Spontaneous
  Country: CN (occurrence: CN)
  Receive Date: 20240329
  Receipt Date: 20240329
  Transmission Date: 20240409
  Serious: Yes (Other)
  Sender: FDA-Public Use
  Company Number: CN-Accord-415483

PATIENT
  Age: 58 Year
  Sex: Male

DRUGS (6)
  1. CISPLATIN [Suspect]
     Active Substance: CISPLATIN
     Indication: Oesophageal squamous cell carcinoma stage II
  2. TISLELIZUMAB [Suspect]
     Active Substance: TISLELIZUMAB
     Indication: Oesophageal squamous cell carcinoma stage II
  3. PACLITAXEL [Suspect]
     Active Substance: PACLITAXEL
     Indication: Oesophageal squamous cell carcinoma stage II
     Dosage: EVERY 3 WEEKS
     Route: 042
  4. TISLELIZUMAB [Suspect]
     Active Substance: TISLELIZUMAB
     Indication: Oesophageal squamous cell carcinoma stage II
     Dosage: 1 CYCLICAL ?EVERY 3 WEEKS
     Route: 042
     Dates: start: 202305, end: 202306
  5. PACLITAXEL [Suspect]
     Active Substance: PACLITAXEL
     Indication: Oesophageal squamous cell carcinoma stage II
     Dosage: EVERY 3 WEEKS?2 MONTHS
     Route: 042
     Dates: start: 202305, end: 202306
  6. CISPLATIN [Suspect]
     Active Substance: CISPLATIN
     Indication: Oesophageal squamous cell carcinoma stage II
     Dosage: 2 MONTHS EVERY 3 WEEKS ?1 CYCLE
     Dates: start: 202305, end: 202306

REACTIONS (1)
  - Neuroendocrine carcinoma of the oesophagus [Recovered/Resolved]

NARRATIVE: CASE EVENT DATE: 20230101
